FAERS Safety Report 6468971-X (Version None)
Quarter: 2009Q4

REPORT INFORMATION
  Report Type: 
  Country: None (occurrence: None)
  Receive Date: 20091203
  Receipt Date: 20080619
  Transmission Date: 20100525
  Serious: Yes (Hospitalization)
  Sender: FDA-Public Use
  Company Number: US-ELI_LILLY_AND_COMPANY-US200701000910

PATIENT
  Sex: Female

DRUGS (23)
  1. CYMBALTA [Suspect]
     Indication: BIPOLAR DISORDER
     Dosage: 30 MG, UNK
     Dates: start: 20040101
  2. CYMBALTA [Suspect]
     Dosage: 60 MG, DAILY (1/D)
  3. CYMBALTA [Suspect]
     Dosage: 60 MG, UNK
  4. CYMBALTA [Suspect]
     Dosage: 20 MG, DAILY (1/D)
  5. CYMBALTA [Suspect]
     Dosage: 40 MG, UNK
  6. CYMBALTA [Suspect]
     Dosage: 30 MG, DAILY (1/D)
  7. CYMBALTA [Suspect]
     Dosage: 20 MG, UNK
  8. CYMBALTA [Suspect]
     Dosage: 50 MG, UNK
  9. CYMBALTA [Suspect]
     Dosage: 60 MG, UNK
  10. SEROQUEL [Concomitant]
     Dosage: 600 MG, DAILY (1/D)
  11. SEROQUEL [Concomitant]
     Dosage: 300 MG, UNK
  12. SEROQUEL [Concomitant]
     Dosage: 200 MG, UNK
     Dates: start: 20080617
  13. LAMICTAL [Concomitant]
     Dosage: 400 MG, DAILY (1/D)
  14. CLONAZEPAM [Concomitant]
     Dosage: 1.5 MG, DAILY (1/D)
  15. CALCIUM [Concomitant]
     Dosage: UNK, DAILY (1/D)
  16. MULTIVITAMIN [Concomitant]
     Dosage: UNK, DAILY (1/D)
  17. ECHINACEA [Concomitant]
     Dosage: UNK, DAILY (1/D)
  18. MULTIVITAMIN ^LAPPE^ [Concomitant]
     Dosage: UNK, DAILY (1/D)
  19. LUNESTA [Concomitant]
     Dosage: 3 MG, UNK
  20. METFORMIN HCL [Concomitant]
  21. LIPITOR [Concomitant]
  22. GEODON [Concomitant]
     Dosage: 40 MG, 2/D
     Dates: start: 20080617
  23. ATIVAN [Concomitant]

REACTIONS (19)
  - AGORAPHOBIA [None]
  - ANXIETY [None]
  - BINGE EATING [None]
  - CRYING [None]
  - DEPRESSION [None]
  - DIARRHOEA [None]
  - FEAR [None]
  - HOT FLUSH [None]
  - HYPERHIDROSIS [None]
  - INSOMNIA [None]
  - LOGORRHOEA [None]
  - MALAISE [None]
  - MANIA [None]
  - MOBILITY DECREASED [None]
  - PARANOIA [None]
  - PSYCHOTIC DISORDER [None]
  - SOMNOLENCE [None]
  - TREMOR [None]
  - VISION BLURRED [None]
